FAERS Safety Report 6706913-X (Version None)
Quarter: 2010Q2

REPORT INFORMATION
  Report Type: 
  Country: None (occurrence: None)
  Receive Date: 20100503
  Receipt Date: 20100421
  Transmission Date: 20101027
  Serious: Yes (Hospitalization)
  Sender: FDA-Public Use
  Company Number: DK-PFIZER INC-2010038046

PATIENT
  Age: 65 Year
  Sex: Male

DRUGS (13)
  1. BLINDED *NO SUBJECT DRUG [Suspect]
     Indication: PROSTATE CANCER
     Dosage: 37.5 MG, 1X/DAY
     Route: 048
     Dates: start: 20091223
  2. BLINDED *PLACEBO [Suspect]
     Indication: PROSTATE CANCER
     Dosage: 37.5 MG, 1X/DAY
     Route: 048
     Dates: start: 20091223
  3. SUNITINIB MALATE [Suspect]
     Indication: PROSTATE CANCER
     Dosage: 37.5 MG, 1X/DAY
     Route: 048
     Dates: start: 20091223
  4. PREDNISOLONE [Suspect]
     Indication: PROSTATE CANCER
     Dosage: 10 MG, 2X/DAY
     Route: 048
     Dates: start: 20091223
  5. SELOZOK [Concomitant]
     Indication: HYPERTENSION
  6. CALCIUM [Concomitant]
     Indication: METASTASES TO BONE
  7. TRIMOPAN [Concomitant]
     Indication: PROPHYLAXIS
  8. HJERTEMAGNYL ^DAK^ [Concomitant]
     Indication: PROPHYLAXIS
  9. VESICARE [Concomitant]
     Indication: URGE INCONTINENCE
     Dosage: UNK
     Dates: start: 20090401
  10. IBUMETIN [Concomitant]
     Indication: PAIN
  11. PARACETAMOL [Concomitant]
     Indication: PAIN
     Dosage: UNK
     Dates: start: 20090930
  12. PANTOLOC ^BYK MADAUS^ [Concomitant]
     Indication: PROPHYLAXIS
     Dosage: UNK
     Dates: start: 20090101
  13. ZOMETA [Concomitant]
     Indication: METASTASES TO BONE
     Dosage: UNK
     Dates: start: 20091015

REACTIONS (1)
  - ORAL FUNGAL INFECTION [None]
